FAERS Safety Report 10769537 (Version 4)
Quarter: 2015Q1

REPORT INFORMATION
  Report Type: Spontaneous
  Country: IT (occurrence: IT)
  Receive Date: 20150206
  Receipt Date: 20150304
  Transmission Date: 20150721
  Serious: Yes (Hospitalization)
  Sender: FDA-Public Use
  Company Number: IT-TEVA-538197ISR

PATIENT
  Age: 29 Year
  Sex: Male

DRUGS (1)
  1. AMOXICILLIN. [Suspect]
     Active Substance: AMOXICILLIN
     Indication: MEDICATION ERROR
     Route: 048
     Dates: start: 20140912, end: 20140912

REACTIONS (3)
  - Medication error [Unknown]
  - Abdominal pain upper [Recovered/Resolved]
  - Wrong drug administered [None]

NARRATIVE: CASE EVENT DATE: 20140912
